FAERS Safety Report 7576156-9 (Version None)
Quarter: 2011Q2

REPORT INFORMATION
  Report Type: 
  Country: None (occurrence: None)
  Receive Date: 20110623
  Receipt Date: 20110623
  Transmission Date: 20111010
  Serious: No
  Sender: FDA-Public Use
  Company Number: None

PATIENT
  Age: 83 Year
  Sex: Male

DRUGS (9)
  1. DECADRON [Concomitant]
  2. K-TAB [Concomitant]
  3. REVLIMID [Suspect]
     Indication: MULTIPLE MYELOMA
     Dosage: 10MG QDX21D/28D ORALLY
     Route: 048
     Dates: start: 20110401, end: 20110601
  4. LASIX [Concomitant]
  5. RANITIDINE [Concomitant]
  6. ATENOLOL [Concomitant]
  7. LOVASTATIN [Concomitant]
  8. LISINOPRIL [Concomitant]
  9. WARFARIN SODIUM [Concomitant]

REACTIONS (2)
  - RENAL IMPAIRMENT [None]
  - OBSTRUCTIVE UROPATHY [None]
